FAERS Safety Report 13864831 (Version 1)
Quarter: 2017Q3

REPORT INFORMATION
  Report Type: Spontaneous
  Country: JP (occurrence: JP)
  Receive Date: 20170814
  Receipt Date: 20170814
  Transmission Date: 20171127
  Serious: Yes (Other)
  Sender: FDA-Public Use
  Company Number: JP-PFIZER INC-2017340791

PATIENT
  Sex: Female

DRUGS (1)
  1. RHEUMATREX [Suspect]
     Active Substance: METHOTREXATE SODIUM
     Dosage: 6 MG, WEEKLY (ONE IN THE MORNING, ONE IN THE EVENING ON THURS AND ONE IN THE MORNING ON FRI)
     Route: 048

REACTIONS (2)
  - Incorrect dose administered [Unknown]
  - Choking [Unknown]

NARRATIVE: CASE EVENT DATE: 20170804
